FAERS Safety Report 10404384 (Version 1)
Quarter: 2014Q3

REPORT INFORMATION
  Report Type: Spontaneous
  Country: GB (occurrence: GB)
  Receive Date: 20140823
  Receipt Date: 20140823
  Transmission Date: 20150326
  Serious: Yes (Death, Other)
  Sender: FDA-Public Use
  Company Number: PHHY2014GB103737

PATIENT
  Age: 51 Year
  Sex: Male

DRUGS (3)
  1. ELTROMBOPAG [Concomitant]
     Active Substance: ELTROMBOPAG
  2. CICLOSPORIN [Suspect]
     Active Substance: CYCLOSPORINE
     Indication: APLASIA
  3. ANTITHYMOCYTE IMMUNOGLOBULIN [Suspect]
     Active Substance: THYMOCYTE IMMUNE GLOBULIN NOS
     Indication: APLASIA

REACTIONS (7)
  - Transplant failure [Unknown]
  - Sepsis [Fatal]
  - Guillain-Barre syndrome [Unknown]
  - Cytomegalovirus infection [Unknown]
  - Respiratory tract infection [Unknown]
  - Engraft failure [Unknown]
  - No therapeutic response [Unknown]
